FAERS Safety Report 4448557-9 (Version None)
Quarter: 2004Q3

REPORT INFORMATION
  Report Type: 
  Country: None (occurrence: None)
  Receive Date: 20040909
  Receipt Date: 20040823
  Transmission Date: 20050211
  Serious: Yes (Disabling)
  Sender: FDA-Public Use
  Company Number: EWC040840351

PATIENT
  Age: 45 Year
  Sex: Male
  Weight: 75 kg

DRUGS (4)
  1. ZYPREXA [Suspect]
     Indication: PSYCHOTIC DISORDER
     Dosage: 15 MG/1 DAY
     Dates: start: 20040416, end: 20040816
  2. SOLIAN (AMISULPRIDE) [Concomitant]
  3. FLUPENTIXOL [Concomitant]
  4. TAFIL (ALPRAZOLAM DUM) [Concomitant]

REACTIONS (3)
  - CHORIORETINOPATHY [None]
  - VISION BLURRED [None]
  - VISUAL ACUITY REDUCED [None]
